FAERS Safety Report 12568249 (Version 1)
Quarter: 2016Q3

REPORT INFORMATION
  Report Type: Spontaneous
  Country: US (occurrence: US)
  Receive Date: 20160718
  Receipt Date: 20160718
  Transmission Date: 20161109
  Serious: No
  Sender: FDA-Public Use
  Company Number: US-JUBILANT CADISTA PHARMACEUTICALS-2016JUB00113

PATIENT
  Sex: Male
  Weight: 69.39 kg

DRUGS (5)
  1. UNSPECIFIED MEDICATIONS [Concomitant]
     Active Substance: UNSPECIFIED INGREDIENT
  2. UNSPECIFIED BLOOD PRESSURE PILL [Concomitant]
  3. XYZAL [Concomitant]
     Active Substance: LEVOCETIRIZINE DIHYDROCHLORIDE
  4. MECLIZINE HYDROCHLORIDE. [Suspect]
     Active Substance: MECLIZINE HYDROCHLORIDE
     Indication: VERTIGO
     Dosage: 25 MG, UNK
     Dates: start: 201602
  5. VITAMIN FOR EYES [Concomitant]

REACTIONS (2)
  - Drug ineffective [Unknown]
  - Fall [Recovered/Resolved]

NARRATIVE: CASE EVENT DATE: 2016
